FAERS Safety Report 6729982-X (Version None)
Quarter: 2010Q2

REPORT INFORMATION
  Report Type: 
  Country: None (occurrence: None)
  Receive Date: 20100513
  Receipt Date: 20100428
  Transmission Date: 20101027
  Serious: Yes (Other)
  Sender: FDA-Public Use
  Company Number: DE-1181303

PATIENT
  Age: 70 Year
  Sex: Female

DRUGS (6)
  1. AZOPT [Suspect]
     Indication: GLAUCOMA
     Dosage: 1 GTT BID
     Route: 047
     Dates: start: 20071001
  2. TEBONIN (GINKGO BILOBA EXTRACT) [Concomitant]
  3. UNSPECIFIED HERBAL [Concomitant]
  4. NEXIUM [Concomitant]
  5. VITAMIN D (COLECALCIFEROL) [Concomitant]
  6. PANGROL (PANCREATIN) [Concomitant]

REACTIONS (5)
  - DIZZINESS [None]
  - HEPATIC CYST [None]
  - HEPATIC STEATOSIS [None]
  - PANCREATIC INSUFFICIENCY [None]
  - PANCREATITIS CHRONIC [None]
